FAERS Safety Report 9741849 (Version 1)
Quarter: 2013Q4

REPORT INFORMATION
  Report Type: Spontaneous
  Country: US (occurrence: US)
  Receive Date: 20131210
  Receipt Date: 20131210
  Transmission Date: 20140711
  Serious: No
  Sender: FDA-Public Use
  Company Number: US-009507513-1311USA008402

PATIENT
  Age: 54 Year
  Sex: Female

DRUGS (1)
  1. VICTRELIS [Suspect]
     Indication: CHRONIC HEPATITIS C
     Dosage: 800 MG, TID
     Route: 048
     Dates: start: 20130924

REACTIONS (8)
  - Injection site rash [Unknown]
  - Headache [Unknown]
  - Nausea [Unknown]
  - Dysgeusia [Unknown]
  - Lung infiltration [Unknown]
  - Swelling [Unknown]
  - Wheezing [Unknown]
  - Depression [Unknown]
